FAERS Safety Report 10073589 (Version 1)
Quarter: 2014Q2

REPORT INFORMATION
  Report Type: Spontaneous
  Country: DK (occurrence: CH)
  Receive Date: 20140411
  Receipt Date: 20140411
  Transmission Date: 20141212
  Serious: Yes (Other)
  Sender: FDA-Public Use
  Company Number: CH-FRI-1000066374

PATIENT
  Sex: Female
  Weight: 55 kg

DRUGS (4)
  1. ESCITALOPRAM [Suspect]
     Indication: DEPRESSION
     Dosage: 5 MG
     Route: 048
     Dates: start: 20140314, end: 20140318
  2. CONCOR [Concomitant]
     Indication: TACHYCARDIA PAROXYSMAL
     Dosage: 5 MG
     Route: 048
  3. CLIMEN [Concomitant]
     Indication: MENOPAUSAL SYMPTOMS
     Route: 048
  4. HALCION [Concomitant]
     Indication: INSOMNIA
     Route: 048

REACTIONS (25)
  - Serotonin syndrome [Recovered/Resolved]
  - Agitation [Recovered/Resolved]
  - Dizziness [Recovered/Resolved]
  - Tremor [Recovered/Resolved]
  - Hyperhidrosis [Recovered/Resolved]
  - Palpitations [Recovered/Resolved]
  - Insomnia [Recovered/Resolved]
  - Blood pressure increased [Recovered/Resolved]
  - Nausea [Recovered/Resolved]
  - Vomiting [Recovered/Resolved]
  - Diarrhoea [Recovered/Resolved]
  - Listless [Recovered/Resolved]
  - Dysphoria [Recovered/Resolved]
  - Fatigue [Recovered/Resolved]
  - Headache [Recovered/Resolved]
  - Heart rate increased [Recovered/Resolved]
  - Tachycardia [Recovered/Resolved]
  - Unresponsive to stimuli [Recovered/Resolved]
  - Body temperature increased [Recovered/Resolved]
  - Gait disturbance [Recovered/Resolved]
  - Dysstasia [Recovered/Resolved]
  - Anxiety [Recovered/Resolved]
  - Hyperventilation [Recovered/Resolved]
  - Refusal of treatment by patient [Recovered/Resolved]
  - Impaired work ability [Recovering/Resolving]
